FAERS Safety Report 15476783 (Version 1)
Quarter: 2018Q4

REPORT INFORMATION
  Report Type: Spontaneous
  Country: US (occurrence: US)
  Receive Date: 20181009
  Receipt Date: 20181009
  Transmission Date: 20190205
  Serious: Yes (Death, Hospitalization, Other)
  Sender: FDA-Public Use
  Company Number: US-NOVOPROD-624742

PATIENT
  Age: 84 Year
  Sex: Male

DRUGS (1)
  1. NOVOLOG [Suspect]
     Active Substance: INSULIN ASPART
     Indication: TYPE 2 DIABETES MELLITUS
     Dosage: UNK
     Route: 058
     Dates: start: 2012, end: 2017

REACTIONS (5)
  - Cystitis [Unknown]
  - Blood pressure increased [Unknown]
  - Blood glucose increased [Unknown]
  - Kidney infection [Unknown]
  - Renal failure [Fatal]
